FAERS Safety Report 21983654 (Version 1)
Quarter: 2023Q1

REPORT INFORMATION
  Report Type: Other
  Country: US (occurrence: None)
  Receive Date: 20230213
  Receipt Date: 20230213
  Transmission Date: 20230417
  Serious: No
  Sender: FDA-Public Use
  Company Number: US-ROCHE-3283107

PATIENT
  Age: 61 Year
  Sex: Female

DRUGS (6)
  1. OCREVUS [Suspect]
     Active Substance: OCRELIZUMAB
     Indication: Relapsing-remitting multiple sclerosis
     Route: 042
  2. OMEPRAZOLE [Concomitant]
     Active Substance: OMEPRAZOLE
  3. NYSTATIN [Concomitant]
     Active Substance: NYSTATIN
  4. PREDNISONE [Concomitant]
     Active Substance: PREDNISONE
  5. GABAPENTIN [Concomitant]
     Active Substance: GABAPENTIN
  6. ATORVASTATIN [Concomitant]
     Active Substance: ATORVASTATIN

REACTIONS (8)
  - Nausea [Recovered/Resolved]
  - Candida infection [Recovering/Resolving]
  - Skin burning sensation [Recovering/Resolving]
  - Cough [Recovering/Resolving]
  - Aphasia [Recovered/Resolved]
  - Fungal infection [Recovering/Resolving]
  - Dysphagia [Recovering/Resolving]
  - Oropharyngeal pain [Recovering/Resolving]

NARRATIVE: CASE EVENT DATE: 20220101
